FAERS Safety Report 24385027 (Version 1)
Quarter: 2024Q4

REPORT INFORMATION
  Report Type: Spontaneous
  Country: US (occurrence: US)
  Receive Date: 20241001
  Receipt Date: 20241001
  Transmission Date: 20250115
  Serious: No
  Sender: JOHNSON AND JOHNSON
  Company Number: US-JNJFOC-20240947377

PATIENT
  Age: 36 Year
  Sex: Female

DRUGS (7)
  1. BENADRYL [Suspect]
     Active Substance: DIPHENHYDRAMINE HYDROCHLORIDE
     Indication: Premedication
     Dosage: 25 UNIT NOT PROVIDED
     Route: 048
     Dates: start: 20240202
  2. ACETAMINOPHEN [Suspect]
     Active Substance: ACETAMINOPHEN
     Indication: Premedication
     Dosage: 1000 (UNITS NOT PROVIDED)
     Route: 048
     Dates: start: 20240202
  3. BRIUMVI [Concomitant]
     Active Substance: UBLITUXIMAB-XIIY
     Indication: Multiple sclerosis
     Route: 042
     Dates: start: 20240202
  4. METHYLPREDNISOLONE [Concomitant]
     Active Substance: METHYLPREDNISOLONE
     Indication: Product used for unknown indication
     Dosage: 125 (UNITS NOT PROVIDED)
     Route: 042
     Dates: start: 20240202
  5. DECADRON [Concomitant]
     Active Substance: DEXAMETHASONE
     Indication: Pruritus
     Dosage: 10 (UNITS NOT PROVIDED)
     Route: 042
     Dates: start: 20240202
  6. PEPCID [Concomitant]
     Active Substance: FAMOTIDINE
     Indication: Product used for unknown indication
     Dosage: 20 (UNITS NOT REPORTED)
     Route: 042
     Dates: start: 20240202
  7. BENADRYL [Concomitant]
     Active Substance: DIPHENHYDRAMINE HYDROCHLORIDE
     Indication: Pruritus
     Route: 042
     Dates: start: 20240202

REACTIONS (1)
  - Off label use [Unknown]
